FAERS Safety Report 10390232 (Version 2)
Quarter: 2014Q3

REPORT INFORMATION
  Report Type: Spontaneous
  Country: SE (occurrence: SE)
  Receive Date: 20140818
  Receipt Date: 20140828
  Transmission Date: 20150326
  Serious: Yes (Other)
  Sender: FDA-Public Use
  Company Number: SE-WATSON-2014-18233

PATIENT
  Age: 8 Year
  Sex: Female

DRUGS (3)
  1. CETIRIZIN [Concomitant]
     Indication: SEASONAL ALLERGY
     Dosage: UNK, PRN
     Route: 065
  2. METRONIDAZOL ACTAVIS [Suspect]
     Active Substance: METRONIDAZOLE
     Indication: ANTIBIOTIC THERAPY
     Dosage: UNK UNK, TID
     Route: 065
     Dates: start: 20140411, end: 20140418
  3. VENTILASTIN [Concomitant]
     Active Substance: ALBUTEROL SULFATE
     Indication: ASTHMA
     Dosage: UNK, DAILY
     Route: 065

REACTIONS (1)
  - Myopia [Not Recovered/Not Resolved]
